FAERS Safety Report 20996783 (Version 2)
Quarter: 2022Q2

REPORT INFORMATION
  Report Type: Spontaneous
  Country: DE (occurrence: DE)
  Receive Date: 20220623
  Receipt Date: 20220630
  Transmission Date: 20220721
  Serious: Yes (Other)
  Sender: FDA-Public Use
  Company Number: DE-SAMSUNG BIOEPIS-SB-2022-15091

PATIENT
  Age: 65 Year
  Sex: Female

DRUGS (1)
  1. ETANERCEPT [Suspect]
     Active Substance: ETANERCEPT
     Indication: Product used for unknown indication
     Dosage: UNKNOWN
     Route: 058

REACTIONS (6)
  - Deafness [Unknown]
  - Eye disorder [Unknown]
  - Injection site pain [Unknown]
  - Device difficult to use [Unknown]
  - COVID-19 [Unknown]
  - Exposure to SARS-CoV-2 [Unknown]
